FAERS Safety Report 24283698 (Version 1)
Quarter: 2024Q3

REPORT INFORMATION
  Report Type: Report from Study
  Country: US (occurrence: US)
  Receive Date: 20240905
  Receipt Date: 20240905
  Transmission Date: 20241017
  Serious: Yes (Other)
  Sender: SANOFI AVENTIS
  Company Number: US-SANOFI-02178767

PATIENT
  Age: 44 Year
  Sex: Female

DRUGS (2)
  1. SARILUMAB [Suspect]
     Active Substance: SARILUMAB
     Indication: Rheumatoid arthritis
     Dosage: 200 MG, QOW
     Route: 058
  2. HUMIRA [Concomitant]
     Active Substance: ADALIMUMAB
     Dosage: UNK

REACTIONS (5)
  - Cerebrovascular accident [Not Recovered/Not Resolved]
  - Cardiac failure [Not Recovered/Not Resolved]
  - Rheumatoid arthritis [Unknown]
  - Joint lock [Unknown]
  - Product dose omission issue [Unknown]
